FAERS Safety Report 24944639 (Version 2)
Quarter: 2025Q1

REPORT INFORMATION
  Report Type: Report from Study
  Country: CA (occurrence: CA)
  Receive Date: 20250208
  Receipt Date: 20250318
  Transmission Date: 20250408
  Serious: No
  Sender: ABBVIE
  Company Number: CA-ABBVIE-6122684

PATIENT
  Age: 64 Year
  Sex: Male

DRUGS (1)
  1. RINVOQ [Suspect]
     Active Substance: UPADACITINIB
     Indication: Dermatitis atopic
     Route: 048
     Dates: start: 202410

REACTIONS (2)
  - Diarrhoea [Unknown]
  - Influenza [Recovering/Resolving]

NARRATIVE: CASE EVENT DATE: 20250130
